FAERS Safety Report 14165612 (Version 1)
Quarter: 2017Q4

REPORT INFORMATION
  Report Type: Spontaneous
  Country: CN (occurrence: CN)
  Receive Date: 20171107
  Receipt Date: 20171107
  Transmission Date: 20180321
  Serious: Yes (Other)
  Sender: FDA-Public Use
  Company Number: CN-PFIZER INC-2017474297

PATIENT
  Age: 45 Year
  Sex: Female
  Weight: 52 kg

DRUGS (3)
  1. PIRARUBICIN [Suspect]
     Active Substance: PIRARUBICIN
     Dosage: 20 MG, 1X/DAY
     Route: 041
     Dates: start: 20170805, end: 20170807
  2. HOMOHARRINGTONINE [Suspect]
     Active Substance: OMACETAXINE MEPESUCCINATE
     Dosage: 1 MG, 1X/DAY
     Route: 041
     Dates: start: 20170805, end: 20170807
  3. CYTARABINE. [Suspect]
     Active Substance: CYTARABINE
     Dosage: 100 MG, 1X/DAY
     Route: 041
     Dates: start: 20170805, end: 20170807

REACTIONS (2)
  - Bone marrow failure [Recovering/Resolving]
  - Gastrointestinal disorder [Recovering/Resolving]

NARRATIVE: CASE EVENT DATE: 20170814
